FAERS Safety Report 5536950-2 (Version None)
Quarter: 2007Q4

REPORT INFORMATION
  Report Type: 
  Country: None (occurrence: None)
  Receive Date: 20071207
  Receipt Date: 20071204
  Transmission Date: 20080405
  Serious: Yes (Death)
  Sender: FDA-Public Use
  Company Number: PHBS2007MX20429

PATIENT
  Sex: Female

DRUGS (1)
  1. DIOVAN [Suspect]
     Route: 048

REACTIONS (3)
  - DIABETES MELLITUS [None]
  - DIALYSIS [None]
  - RENAL FAILURE [None]
